FAERS Safety Report 8585655 (Version 34)
Quarter: 2016Q2

REPORT INFORMATION
  Report Type: Spontaneous
  Country: US (occurrence: US)
  Receive Date: 20120530
  Receipt Date: 20160520
  Transmission Date: 20160815
  Serious: Yes (Hospitalization, Other)
  Sender: FDA-Public Use
  Company Number: US-GLAXOSMITHKLINE-A0961007A

PATIENT
  Age: 55 Year
  Sex: Female
  Weight: 82 kg

DRUGS (14)
  1. FLOLAN [Suspect]
     Active Substance: EPOPROSTENOL SODIUM
     Dosage: 31 NG/KG/MIN (CONCENTRATION 60,000 NG/ML, PUMP RATE 67 ML/DAY, VIAL STRENGTH 1.5 MG/ML), CO
  2. REVATIO [Concomitant]
     Active Substance: SILDENAFIL CITRATE
     Dosage: 20 MG, TID
  3. FLOLAN [Suspect]
     Active Substance: EPOPROSTENOL SODIUM
     Dosage: 31 DF, CO
  4. FLOLAN [Suspect]
     Active Substance: EPOPROSTENOL SODIUM
     Dosage: 31 DF, CO
     Route: 042
  5. FLOLAN [Suspect]
     Active Substance: EPOPROSTENOL SODIUM
     Dosage: 30 NG/KG/MIN CONTINUOUSLY
  6. FLOLAN [Suspect]
     Active Substance: EPOPROSTENOL SODIUM
     Dosage: 30 DF, CO
     Route: 042
  7. FLOLAN [Suspect]
     Active Substance: EPOPROSTENOL SODIUM
     Dosage: 31 DF, CO
     Dates: start: 20111201
  8. FLOLAN [Suspect]
     Active Substance: EPOPROSTENOL SODIUM
     Indication: PULMONARY ARTERIAL HYPERTENSION
     Dosage: 32 NG/KG/MIN CONTINUOUSLY19 NG/KG/MIN CONTINUOUSLY23 NG/KG/MINUTE, 45,000 NG/ML, PUMP RATE 66 M[...]
     Route: 042
     Dates: start: 20111201
  9. FLOLAN [Suspect]
     Active Substance: EPOPROSTENOL SODIUM
     Dosage: UNK
     Dates: start: 20111202
  10. FLOLAN [Suspect]
     Active Substance: EPOPROSTENOL SODIUM
     Dosage: UNK
     Dates: start: 20111202
  11. FLOLAN [Suspect]
     Active Substance: EPOPROSTENOL SODIUM
     Dosage: 31 NG/KG/MIN, CONCENTRATION 45,000 NG/ML
     Route: 042
     Dates: start: 20111201
  12. FLOLAN [Suspect]
     Active Substance: EPOPROSTENOL SODIUM
     Dosage: UNK
     Dates: start: 20111202
  13. FLOLAN [Suspect]
     Active Substance: EPOPROSTENOL SODIUM
     Dosage: 31 NG/KG/MIN
     Route: 042
  14. WARFARIN [Concomitant]
     Active Substance: WARFARIN

REACTIONS (21)
  - Retching [Unknown]
  - Somnolence [Unknown]
  - Weight decreased [Unknown]
  - Nausea [Recovered/Resolved]
  - Feeling abnormal [Unknown]
  - Hospitalisation [Unknown]
  - Shunt malfunction [Unknown]
  - Ear discomfort [Unknown]
  - Device malfunction [Recovered/Resolved]
  - Rash [Not Recovered/Not Resolved]
  - Nasopharyngitis [Unknown]
  - Malaise [Unknown]
  - Product quality issue [Unknown]
  - Infusion related reaction [Unknown]
  - Catheter site urticaria [Not Recovered/Not Resolved]
  - Muscle spasms [Unknown]
  - Adverse drug reaction [Unknown]
  - Device leakage [Recovered/Resolved]
  - Pleural effusion [Unknown]
  - Cough [Unknown]
  - Pruritus [Not Recovered/Not Resolved]

NARRATIVE: CASE EVENT DATE: 20111202
